FAERS Safety Report 10220146 (Version 1)
Quarter: 2014Q2

REPORT INFORMATION
  Report Type: Spontaneous
  Country: US (occurrence: US)
  Receive Date: 20140605
  Receipt Date: 20140605
  Transmission Date: 20141212
  Serious: No
  Sender: FDA-Public Use
  Company Number: US-009507513-1405USA011337

PATIENT
  Sex: 0
  Weight: 68.27 kg

DRUGS (2)
  1. NEXPLANON [Suspect]
     Dosage: 1 ROD IN PATIENT^S ARM
     Route: 059
     Dates: start: 20140521
  2. NEXPLANON [Suspect]
     Dosage: 1 ROD IN THE ARM
     Dates: start: 20140521, end: 20140521

REACTIONS (2)
  - Device difficult to use [Recovered/Resolved]
  - No adverse event [Unknown]
